FAERS Safety Report 13901680 (Version 4)
Quarter: 2017Q4

REPORT INFORMATION
  Report Type: Spontaneous
  Country: US (occurrence: US)
  Receive Date: 20170824
  Receipt Date: 20171213
  Transmission Date: 20180320
  Serious: Yes (Death, Other)
  Sender: FDA-Public Use
  Company Number: US-PFIZER INC-2017360942

PATIENT
  Age: 20 Year
  Sex: Female

DRUGS (1)
  1. DEPO-PROVERA [Suspect]
     Active Substance: MEDROXYPROGESTERONE ACETATE
     Indication: CONTRACEPTION
     Dosage: UNK
     Dates: end: 2012

REACTIONS (22)
  - Type 2 diabetes mellitus [Unknown]
  - Headache [Unknown]
  - Gestational diabetes [Unknown]
  - Vision blurred [Unknown]
  - Amenorrhoea [Unknown]
  - Urinary tract infection [Unknown]
  - Cerebral haemorrhage [Fatal]
  - Drug ineffective [Unknown]
  - Weight increased [Unknown]
  - Idiopathic intracranial hypertension [Fatal]
  - Breath odour [Unknown]
  - Growing pains [Unknown]
  - Alopecia [Unknown]
  - Unintended pregnancy [Unknown]
  - Mood swings [Unknown]
  - Skin odour abnormal [Unknown]
  - Fungal infection [Unknown]
  - Cerebrovascular accident [Fatal]
  - Respiratory failure [Fatal]
  - Depression [Unknown]
  - Cystitis [Unknown]
  - Palpitations [Unknown]
